FAERS Safety Report 14154568 (Version 2)
Quarter: 2017Q4

REPORT INFORMATION
  Report Type: Spontaneous
  Country: CN (occurrence: CN)
  Receive Date: 20171102
  Receipt Date: 20171113
  Transmission Date: 20180321
  Serious: Yes (Other)
  Sender: FDA-Public Use
  Company Number: CN-PFIZER INC-2017473689

PATIENT
  Age: 63 Year
  Sex: Male
  Weight: 63 kg

DRUGS (5)
  1. METHYLPREDNISOLONE SODIUM SUCCINATE. [Suspect]
     Active Substance: METHYLPREDNISOLONE SODIUM SUCCINATE
     Indication: INFECTION
     Dosage: 80 MG, 3X/DAY
     Route: 042
     Dates: start: 20170920, end: 20170921
  2. METHYLPREDNISOLONE SODIUM SUCCINATE. [Suspect]
     Active Substance: METHYLPREDNISOLONE SODIUM SUCCINATE
     Dosage: 40 MG, 3X/DAY (EVERY 8 HOURS)
     Route: 042
     Dates: start: 20170922, end: 20170923
  3. METHYLPREDNISOLONE SODIUM SUCCINATE. [Suspect]
     Active Substance: METHYLPREDNISOLONE SODIUM SUCCINATE
     Dosage: 40 MG, 2X/DAY (EVERY 12 HOURS)
     Route: 042
     Dates: start: 20170924, end: 20170925
  4. MANNITOL. [Suspect]
     Active Substance: MANNITOL
     Indication: DEHYDRATION
     Dosage: 125 ML, 3X/DAY (EVERY 8 HOURS)
     Route: 041
     Dates: start: 20170920, end: 20170925
  5. MANNITOL. [Suspect]
     Active Substance: MANNITOL
     Dosage: 125 ML, 2X/DAY (EVERY 12 HOURS)
     Route: 041
     Dates: start: 20170926, end: 20170927

REACTIONS (1)
  - Hepatic function abnormal [Not Recovered/Not Resolved]

NARRATIVE: CASE EVENT DATE: 20170924
